FAERS Safety Report 15922383 (Version 2)
Quarter: 2019Q1

REPORT INFORMATION
  Report Type: Report from Study
  Country: JP (occurrence: JP)
  Receive Date: 20190206
  Receipt Date: 20190328
  Transmission Date: 20190417
  Serious: Yes (Death)
  Sender: FDA-Public Use
  Company Number: JP-ROCHE-2220558

PATIENT
  Age: 77 Year
  Sex: Female
  Weight: 43 kg

DRUGS (2)
  1. ATEZOLIZUMAB. [Suspect]
     Active Substance: ATEZOLIZUMAB
     Indication: LUNG ADENOCARCINOMA
     Dosage: MOST RECENT DOSE PRIOR TO EVENT: 18/SEP/2018
     Route: 041
     Dates: start: 20180717
  2. DOCETAXEL HYDRATE [Suspect]
     Active Substance: DOCETAXEL
     Indication: LUNG ADENOCARCINOMA
     Dosage: ONCE DOSAGE:80 (UNIT UNCERTAINTY)
     Route: 041
     Dates: start: 20181009, end: 20181030

REACTIONS (1)
  - Interstitial lung disease [Fatal]

NARRATIVE: CASE EVENT DATE: 20181108
